FAERS Safety Report 4470487-7 (Version None)
Quarter: 2004Q4

REPORT INFORMATION
  Report Type: 
  Country: None (occurrence: None)
  Receive Date: 20041005
  Receipt Date: 20040927
  Transmission Date: 20050328
  Serious: Yes (Hospitalization, Other)
  Sender: FDA-Public Use
  Company Number: KII-2004-0013474

PATIENT
  Age: 25 Year
  Sex: Male

DRUGS (3)
  1. OXYCONTIN [Suspect]
     Dosage: ORAL
     Route: 048
  2. METHADONE HCL [Suspect]
     Dosage: Q4H, ORAL
     Route: 048
  3. BENZODIAZEPINES DERIVATIVES () [Suspect]

REACTIONS (9)
  - ASPIRATION [None]
  - BODY TEMPERATURE INCREASED [None]
  - DEPRESSED LEVEL OF CONSCIOUSNESS [None]
  - DRUG ABUSER [None]
  - HEART RATE INCREASED [None]
  - HYPOXIA [None]
  - OVERDOSE [None]
  - RESPIRATORY RATE DECREASED [None]
  - VOMITING [None]
